FAERS Safety Report 23118968 (Version 11)
Quarter: 2025Q1

REPORT INFORMATION
  Report Type: Report from Study
  Country: DE (occurrence: DE)
  Receive Date: 20231028
  Receipt Date: 20250313
  Transmission Date: 20250408
  Serious: Yes (Death, Hospitalization, Other)
  Sender: AMGEN
  Company Number: DE-AMGEN-UK000359

PATIENT
  Age: 55 Year
  Sex: Female
  Weight: 71 kg

DRUGS (124)
  1. FILGRASTIM [Suspect]
     Active Substance: FILGRASTIM
     Indication: Neutropenia
     Dosage: 700 MICROGRAM, QD
     Route: 042
     Dates: start: 19990521, end: 19990521
  2. FILGRASTIM [Suspect]
     Active Substance: FILGRASTIM
     Indication: Bone marrow transplant
  3. METHYLPREDNISOLONE [Suspect]
     Active Substance: METHYLPREDNISOLONE
     Indication: Prophylaxis against graft versus host disease
     Dosage: UNK, QD
     Route: 042
     Dates: start: 19990425, end: 19990425
  4. METHYLPREDNISOLONE [Suspect]
     Active Substance: METHYLPREDNISOLONE
     Route: 042
     Dates: start: 19990425, end: 19990507
  5. METHYLPREDNISOLONE [Suspect]
     Active Substance: METHYLPREDNISOLONE
     Route: 042
     Dates: start: 19990427, end: 19990428
  6. METHYLPREDNISOLONE [Suspect]
     Active Substance: METHYLPREDNISOLONE
     Route: 042
     Dates: start: 19990507
  7. METHYLPREDNISOLONE [Suspect]
     Active Substance: METHYLPREDNISOLONE
     Route: 042
  8. FUROSEMIDE [Suspect]
     Active Substance: FUROSEMIDE
     Indication: Oedema
     Dosage: UNK, QD
     Route: 042
     Dates: start: 19990425, end: 19990425
  9. FUROSEMIDE [Suspect]
     Active Substance: FUROSEMIDE
     Route: 042
     Dates: start: 19990428, end: 19990502
  10. FUROSEMIDE [Suspect]
     Active Substance: FUROSEMIDE
     Dosage: UNK
     Route: 042
     Dates: start: 19990504, end: 19990504
  11. FUROSEMIDE [Suspect]
     Active Substance: FUROSEMIDE
     Route: 042
     Dates: start: 19990506
  12. DIPRIVAN [Suspect]
     Active Substance: PROPOFOL
     Indication: Dyspnoea
     Route: 065
  13. DEXPANTHENOL [Suspect]
     Active Substance: DEXPANTHENOL
     Indication: Bronchospasm
     Route: 055
     Dates: start: 19990519, end: 19990520
  14. PANTOPRAZOLE SODIUM [Suspect]
     Active Substance: PANTOPRAZOLE SODIUM
     Indication: Prophylaxis against gastrointestinal ulcer
     Dosage: UNK, QD
     Route: 042
     Dates: start: 19990521, end: 19990521
  15. CYCLOPHOSPHAMIDE [Suspect]
     Active Substance: CYCLOPHOSPHAMIDE
     Indication: Bone marrow transplant
     Dosage: 4260 MILLIGRAM, BID
     Route: 040
     Dates: start: 19990425, end: 19990425
  16. OMEPRAZOLE [Suspect]
     Active Substance: OMEPRAZOLE
     Indication: Prophylaxis against gastrointestinal ulcer
     Dosage: 40 MG, QD
     Route: 042
     Dates: start: 19990502
  17. OMEPRAZOLE [Suspect]
     Active Substance: OMEPRAZOLE
     Indication: Mucositis management
  18. METHOTREXATE SODIUM [Suspect]
     Active Substance: METHOTREXATE SODIUM
     Indication: Prophylaxis against transplant rejection
     Dosage: UNK UNK, QD
     Route: 065
     Dates: start: 19990429, end: 19990429
  19. METHOTREXATE SODIUM [Suspect]
     Active Substance: METHOTREXATE SODIUM
     Dosage: UNK UNK, QD
     Route: 065
     Dates: start: 19990501, end: 19990501
  20. NOVALGINA [Suspect]
     Active Substance: ACETAMINOPHEN\CAFFEINE
     Indication: Pain
     Route: 042
     Dates: start: 19990427, end: 19990427
  21. NOVALGINA [Suspect]
     Active Substance: ACETAMINOPHEN\CAFFEINE
     Route: 042
     Dates: start: 19990428
  22. NOVALGINA [Suspect]
     Active Substance: ACETAMINOPHEN\CAFFEINE
     Route: 042
     Dates: start: 19990506, end: 19990516
  23. ALPROSTADIL ALFADEX [Suspect]
     Active Substance: ALPROSTADIL ALFADEX
     Indication: Poor peripheral circulation
     Route: 040
     Dates: start: 19990503, end: 19990511
  24. ALPROSTADIL ALFADEX [Suspect]
     Active Substance: ALPROSTADIL ALFADEX
     Dosage: UNK UNK, QD  INHALATION VAPOUR, SOLUTION
     Route: 040
     Dates: start: 19990521, end: 19990521
  25. ALPROSTADIL ALFADEX [Suspect]
     Active Substance: ALPROSTADIL ALFADEX
     Route: 040
     Dates: start: 19990503, end: 19990521
  26. PROMETHAZINE HYDROCHLORIDE [Suspect]
     Active Substance: PROMETHAZINE HYDROCHLORIDE
     Indication: Restlessness
     Route: 042
     Dates: start: 19990518, end: 19990520
  27. LETROZOLE [Suspect]
     Active Substance: LETROZOLE
     Indication: Coagulopathy
     Dosage: 2 DOSAGE FORM, QD
     Route: 065
     Dates: start: 19990519, end: 19990519
  28. OFLOXACIN [Suspect]
     Active Substance: OFLOXACIN
     Indication: Pneumonia bacterial
     Dosage: 400 MG, QD
     Route: 042
     Dates: start: 19990428, end: 19990503
  29. OFLOXACIN [Suspect]
     Active Substance: OFLOXACIN
     Route: 048
     Dates: start: 19990527
  30. METHOTREXATE SODIUM [Suspect]
     Active Substance: METHOTREXATE SODIUM
     Indication: Prophylaxis against transplant rejection
     Dosage: UNK
     Route: 042
     Dates: start: 19990429, end: 19990429
  31. METHOTREXATE SODIUM [Suspect]
     Active Substance: METHOTREXATE SODIUM
     Dosage: UNK, QD
     Route: 042
     Dates: start: 19990501, end: 19990501
  32. ERYTHROMYCIN [Suspect]
     Active Substance: ERYTHROMYCIN
     Indication: Pneumonia
     Dosage: 1500 MG, QD
     Route: 042
     Dates: start: 19990517
  33. BROMAZEPAM [Suspect]
     Active Substance: BROMAZEPAM
     Indication: Restlessness
     Dosage: 3 MILLIGRAM, QD 13 DAYS
     Route: 048
     Dates: start: 19990423, end: 19990505
  34. BROMAZEPAM [Suspect]
     Active Substance: BROMAZEPAM
     Dosage: 3 MILLIGRAM, QD 1 DAY
     Route: 048
     Dates: start: 19990430, end: 19990430
  35. BROMAZEPAM [Suspect]
     Active Substance: BROMAZEPAM
     Dosage: 3 MILLIGRAM, QD 3 DAYS
     Route: 048
     Dates: start: 19990503, end: 19990505
  36. BROMAZEPAM [Suspect]
     Active Substance: BROMAZEPAM
     Route: 048
  37. NYSTATIN [Suspect]
     Active Substance: NYSTATIN
     Indication: Candida infection
     Dosage: 12 ML, UNCLEAR WHETHER ADMINISTERED 3 OR 4
     Route: 048
     Dates: start: 19990423, end: 19990423
  38. NYSTATIN [Suspect]
     Active Substance: NYSTATIN
     Dosage: 12 ML, UNCLEAR WHETHER ADMINISTERED 3 OR 4
     Route: 048
     Dates: start: 19990516
  39. AMPHOTERICIN B [Suspect]
     Active Substance: AMPHOTERICIN B
     Indication: Candida infection
     Dosage: 20 MILLIGRAM, QD
  40. AMPHOTERICIN B [Suspect]
     Active Substance: AMPHOTERICIN B
     Indication: Bronchopulmonary aspergillosis
     Dosage: UNK UNK, QD
     Route: 042
     Dates: start: 19990423, end: 19990423
  41. AMPHOTERICIN B [Suspect]
     Active Substance: AMPHOTERICIN B
     Indication: Pneumonia mycoplasmal
     Dosage: UNK UNK, QD
     Route: 042
     Dates: start: 19990430
  42. AMPHOTERICIN B [Suspect]
     Active Substance: AMPHOTERICIN B
     Dosage: UNK, QD
     Route: 042
  43. AMPHOTERICIN B [Suspect]
     Active Substance: AMPHOTERICIN B
     Dosage: 4 MILLILITER, QD (28 DAYS) (4DF)
     Route: 042
     Dates: start: 19990424, end: 19990521
  44. AMPHOTERICIN B [Suspect]
     Active Substance: AMPHOTERICIN B
     Dosage: 4 MILLILITER, QD
     Route: 042
  45. AMPHOTERICIN B [Suspect]
     Active Substance: AMPHOTERICIN B
  46. MORPHINE [Suspect]
     Active Substance: MORPHINE
     Indication: Pain
     Route: 042
     Dates: start: 19990501, end: 19990520
  47. ACETYLCYSTEINE [Suspect]
     Active Substance: ACETYLCYSTEINE
     Indication: Mucositis management
     Dosage: UNK UNK, QD
     Route: 042
     Dates: start: 19990502
  48. CEFTAZIDIME [Suspect]
     Active Substance: CEFTAZIDIME
     Indication: Pneumonia
     Route: 042
     Dates: start: 19990503, end: 19990517
  49. CEFTAZIDIME [Suspect]
     Active Substance: CEFTAZIDIME
     Route: 042
     Dates: start: 19990519, end: 19990520
  50. TARGOCID [Suspect]
     Active Substance: TEICOPLANIN
     Indication: Pneumonia
     Dosage: 400 MG, QD
     Route: 042
     Dates: start: 19990503
  51. CAVERJECT [Concomitant]
     Active Substance: ALPROSTADIL
     Indication: Product used for unknown indication
     Dosage: 1 DOSAGE FORM, QD ((19 DAYS))
     Route: 042
     Dates: start: 19990503, end: 19990521
  52. CAVERJECT [Concomitant]
     Active Substance: ALPROSTADIL
     Route: 042
     Dates: start: 19990521, end: 19990521
  53. TOBRAMYCIN SULFATE [Suspect]
     Active Substance: TOBRAMYCIN SULFATE
     Indication: Pneumonia
     Dosage: UNK UNK, QD
     Route: 042
     Dates: start: 19990511
  54. TOBRAMYCIN SULFATE [Suspect]
     Active Substance: TOBRAMYCIN SULFATE
     Dosage: UNK
     Route: 042
     Dates: start: 19990521, end: 19990521
  55. ALBUMIN HUMAN [Suspect]
     Active Substance: ALBUMIN HUMAN
     Indication: Hypoalbuminaemia
     Route: 042
     Dates: start: 19990516, end: 19990516
  56. ALBUMIN HUMAN [Suspect]
     Active Substance: ALBUMIN HUMAN
     Route: 042
  57. ACTRAPID [Suspect]
     Active Substance: INSULIN HUMAN
     Indication: Hyperglycaemia
     Dosage: UNK, QD
     Route: 042
     Dates: start: 19990510, end: 19990520
  58. ACTRAPID [Suspect]
     Active Substance: INSULIN HUMAN
     Dosage: UNK UNK, QD
     Route: 042
     Dates: start: 19990517, end: 19990517
  59. ACTRAPID [Suspect]
     Active Substance: INSULIN HUMAN
     Dosage: UNK, QD
     Route: 042
     Dates: start: 19990519, end: 19990520
  60. CILASTATIN SODIUM\IMIPENEM [Suspect]
     Active Substance: CILASTATIN SODIUM\IMIPENEM
     Indication: Pneumonia
     Dosage: 1500 MG, QD
     Route: 042
     Dates: start: 19990517
  61. ISOPROMETHAZINE HYDROCHLORIDE [Suspect]
     Active Substance: ISOPROMETHAZINE HYDROCHLORIDE
     Indication: Product used for unknown indication
     Dosage: 25 MG, QD DAILY DOSE (3 DAYS)
     Route: 042
     Dates: start: 19990518, end: 19990520
  62. DOXYCYCLINE [Suspect]
     Active Substance: DOXYCYCLINE
     Indication: Pneumonia
     Dosage: 100 MILLIGRAM, QD
     Route: 042
     Dates: start: 19990518
  63. DOXYCYCLINE [Suspect]
     Active Substance: DOXYCYCLINE
     Dosage: 1 DOSAGE FORM, QD
     Route: 048
     Dates: start: 19990519, end: 19990519
  64. PLASMA PROTEIN FRACTION (HUMAN) [Suspect]
     Active Substance: PLASMA PROTEIN FRACTION (HUMAN)
     Indication: Coagulopathy
     Dosage: 2 DOSAGE FORM, QD
     Route: 042
     Dates: start: 19990519, end: 19990519
  65. DEXPANTHENOL [Suspect]
     Active Substance: DEXPANTHENOL
     Indication: Bronchospasm
     Route: 055
     Dates: start: 19990519, end: 19990520
  66. GANCICLOVIR [Suspect]
     Active Substance: GANCICLOVIR
     Indication: Prophylaxis
     Dosage: UNK, QD
     Route: 042
     Dates: start: 19990519
  67. SULTANOL [Suspect]
     Active Substance: ALBUTEROL SULFATE
     Indication: Bronchospasm
     Dosage: UNK, QD
     Route: 055
     Dates: start: 19990519
  68. THEOPHYLLINE [Suspect]
     Active Substance: THEOPHYLLINE
     Indication: Bronchospasm
     Route: 042
     Dates: start: 19990519, end: 19990520
  69. THEOPHYLLINE SODIUM GLYCINATE [Suspect]
     Active Substance: THEOPHYLLINE SODIUM GLYCINATE
     Indication: Respiratory failure
     Dosage: 400 MILLIGRAM, QD
     Route: 042
     Dates: start: 19990519, end: 19990519
  70. THEOPHYLLINE SODIUM GLYCINATE [Suspect]
     Active Substance: THEOPHYLLINE SODIUM GLYCINATE
     Dosage: 400 MILLIGRAM, QD
     Route: 042
     Dates: start: 19990520, end: 19990520
  71. TAVOR (LORAZEPAM) [Suspect]
     Active Substance: LORAZEPAM
     Indication: Restlessness
     Dosage: 1 MG, UNK
     Route: 042
     Dates: start: 19990519, end: 19990520
  72. TAVOR (LORAZEPAM) [Suspect]
     Active Substance: LORAZEPAM
     Dosage: 1 MG, UNK
     Route: 042
     Dates: start: 19990520
  73. VANCOMYCIN [Suspect]
     Active Substance: VANCOMYCIN
     Indication: Pneumonia
     Dosage: 1 GRAM, QD
     Route: 042
     Dates: start: 19990521, end: 19990521
  74. NOREPINEPHRINE HYDROCHLORIDE, (+/-)- [Suspect]
     Active Substance: NOREPINEPHRINE HYDROCHLORIDE, (+/-)-
     Indication: Cardiovascular disorder
     Dosage: UNK, QD
     Route: 042
     Dates: start: 19990521, end: 19990521
  75. ATROVENT [Suspect]
     Active Substance: IPRATROPIUM BROMIDE
     Indication: Respiratory failure
     Dosage: UNK, QD
     Route: 055
     Dates: start: 19990521, end: 19990521
  76. PROPOFOL [Suspect]
     Active Substance: PROPOFOL
     Indication: Anaesthesia
     Route: 042
     Dates: start: 19990521, end: 19990521
  77. PROPOFOL [Suspect]
     Active Substance: PROPOFOL
     Indication: Dyspnoea
  78. SUFENTA [Suspect]
     Active Substance: SUFENTANIL CITRATE
     Indication: Anaesthesia
     Route: 042
     Dates: start: 19990521, end: 19990521
  79. THEOPHYLLINE ANHYDROUS [Suspect]
     Active Substance: THEOPHYLLINE ANHYDROUS
     Indication: Dyspnoea
     Dosage: 400 MILLIGRAM, QD
     Route: 042
     Dates: start: 19990519, end: 19990519
  80. THEOPHYLLINE ANHYDROUS [Suspect]
     Active Substance: THEOPHYLLINE ANHYDROUS
     Indication: Respiratory failure
     Dosage: 400 MILLIGRAM, QD
     Route: 042
     Dates: start: 19990520, end: 19990520
  81. TROMETHAMINE [Suspect]
     Active Substance: TROMETHAMINE
     Indication: Metabolic acidosis
     Route: 042
     Dates: start: 19990518, end: 19990518
  82. TROMETHAMINE [Suspect]
     Active Substance: TROMETHAMINE
     Route: 042
     Dates: start: 19990521
  83. KONAKION [Concomitant]
     Active Substance: PHYTONADIONE
     Indication: Vitamin K deficiency
     Route: 042
     Dates: start: 19900426, end: 19900517
  84. LENOGRASTIM [Concomitant]
     Active Substance: LENOGRASTIM
     Indication: Neutropenia
     Route: 065
     Dates: start: 19900429
  85. VITINTRA [Concomitant]
     Active Substance: ERGOCALCIFEROL\PHYTONADIONE\RETINOL\VITAMIN A PALMITATE
     Indication: Nutritional supplementation
     Route: 065
  86. MAGNESIUM ASPARTATE\POTASSIUM ASPARTATE [Concomitant]
     Active Substance: MAGNESIUM ASPARTATE\POTASSIUM ASPARTATE
     Indication: Nutritional supplementation
     Dosage: 10 MILLILITER, QD ONCE A DAY
     Route: 042
  87. MAGNESIUM ASPARTATE\POTASSIUM ASPARTATE [Concomitant]
     Active Substance: MAGNESIUM ASPARTATE\POTASSIUM ASPARTATE
     Dosage: 10 MILLILITER, QD ONCE A DAY
     Route: 042
  88. MAGNESIUM ASPARTATE\POTASSIUM ASPARTATE [Concomitant]
     Active Substance: MAGNESIUM ASPARTATE\POTASSIUM ASPARTATE
     Dosage: 10 MILLILITER, QD ONCE A DAY
     Route: 042
  89. SOYBEAN OIL [Concomitant]
     Active Substance: SOYBEAN OIL
     Indication: Nutritional supplementation
     Dosage: 200 MILLILITER, QD
     Route: 042
  90. SODIUM CHLORIDE [Concomitant]
     Active Substance: SODIUM CHLORIDE
     Indication: Hyponatraemia
     Dosage: 50 MILLIGRAM, QD (3 DAYS)
     Route: 042
     Dates: start: 19990424, end: 19990426
  91. SODIUM CHLORIDE [Concomitant]
     Active Substance: SODIUM CHLORIDE
     Indication: Volume blood decreased
     Dosage: 50 MILLILITER, QD 7 DAYS
     Route: 042
     Dates: start: 19990429, end: 19990505
  92. SODIUM CHLORIDE [Concomitant]
     Active Substance: SODIUM CHLORIDE
     Dosage: 50 MILLILITER, QD 12 DAYS
     Route: 042
     Dates: start: 19990424, end: 19990505
  93. VITAMINS [Concomitant]
     Active Substance: VITAMINS
     Indication: Nutritional supplementation
     Route: 040
  94. SEMPERA [Concomitant]
     Active Substance: ITRACONAZOLE
     Indication: Fungal infection
     Dosage: 200 MILLIGRAM, QD
     Route: 048
     Dates: start: 19990429, end: 19990429
  95. SODIUM BICARBONATE [Concomitant]
     Active Substance: SODIUM BICARBONATE
     Indication: Product used for unknown indication
     Route: 040
     Dates: start: 19990517, end: 19990517
  96. PHENYTOIN [Concomitant]
     Active Substance: PHENYTOIN
     Indication: Prophylaxis
     Dosage: 400 MG, QD
     Route: 048
     Dates: start: 19990419, end: 19990427
  97. ZOVIRAX [Concomitant]
     Active Substance: ACYCLOVIR
     Indication: Prophylaxis
     Route: 065
     Dates: start: 19990419, end: 19990426
  98. ZOVIRAX [Concomitant]
     Active Substance: ACYCLOVIR
     Route: 042
     Dates: start: 19990426, end: 19990519
  99. CLEMASTINE FUMARATE [Concomitant]
     Active Substance: CLEMASTINE FUMARATE
     Indication: Pruritus
     Dosage: UNK, QD
     Dates: start: 19990524
  100. MYLERAN [Concomitant]
     Active Substance: BUSULFAN
     Indication: Bone marrow transplant
     Dosage: 284 MG, QD
     Route: 065
     Dates: start: 19990423, end: 19990423
  101. CYCLOPHOSPHAMIDE [Concomitant]
     Active Substance: CYCLOPHOSPHAMIDE
     Indication: Bone marrow transplant
     Dosage: 4260 MILLIGRAM, QD
     Route: 065
     Dates: start: 19990425, end: 19990426
  102. ETOPOSIDE [Concomitant]
     Active Substance: ETOPOSIDE
     Indication: Bone marrow transplant
     Dosage: 2130 MILLIGRAM, QD
     Route: 065
     Dates: start: 19990424, end: 19990424
  103. HEPARIN [Concomitant]
     Active Substance: HEPARIN SODIUM
     Indication: Thrombosis prophylaxis
     Dosage: 18000 INTERNATIONAL UNIT, QD
     Route: 058
     Dates: start: 19990427, end: 19990427
  104. DEXAMETHASONE [Concomitant]
     Active Substance: DEXAMETHASONE
     Indication: Bone marrow transplant
     Dosage: 24 MILLIGRAM, QD
     Route: 042
     Dates: start: 19990424, end: 19990426
  105. MAGNESIUM [Concomitant]
     Active Substance: MAGNESIUM
     Indication: Hypomagnesaemia
     Route: 042
     Dates: start: 19990429, end: 19990513
  106. ZOFRAN [Concomitant]
     Active Substance: ONDANSETRON HYDROCHLORIDE
     Indication: Nausea
     Dosage: 16 MILLIGRAM, QWK
     Route: 048
     Dates: start: 19990426, end: 19990426
  107. ZOFRAN [Concomitant]
     Active Substance: ONDANSETRON HYDROCHLORIDE
     Dosage: UNK, QWK
     Route: 042
     Dates: start: 19990427, end: 19990503
  108. ZOFRAN [Concomitant]
     Active Substance: ONDANSETRON HYDROCHLORIDE
     Route: 042
     Dates: start: 19990519
  109. PENTACARINAT [Concomitant]
     Active Substance: PENTAMIDINE ISETHIONATE
     Indication: Pneumonia
     Dosage: 300 MILLIGRAM, QD
     Dates: start: 19990425, end: 19990425
  110. CYCLOSPORINE [Concomitant]
     Active Substance: CYCLOSPORINE
     Indication: Bone marrow transplant
     Route: 042
     Dates: start: 19990421, end: 19990427
  111. CYCLOSPORINE [Concomitant]
     Active Substance: CYCLOSPORINE
     Route: 042
     Dates: start: 19990427, end: 19990521
  112. DEXTROSE [Concomitant]
     Active Substance: DEXTROSE MONOHYDRATE
     Indication: Nutritional supplementation
     Route: 040
     Dates: start: 19990424
  113. CALCIUM GLUCONATE [Concomitant]
     Active Substance: CALCIUM GLUCONATE
     Indication: Hypocalcaemia
     Dosage: 20 MILLILITER, QD (20 DF)
     Route: 065
     Dates: start: 19990429, end: 19990508
  114. LAPINE T-LYMPHOCYTE IMMUNE GLOBULIN [Concomitant]
     Active Substance: LAPINE T-LYMPHOCYTE IMMUNE GLOBULIN
     Indication: Bone marrow transplant
     Dosage: UNK, QD
     Route: 065
     Dates: start: 19990427, end: 19990427
  115. Clont [Concomitant]
     Indication: Pneumonia bacterial
     Dosage: 1500 MILLIGRAM, QD
     Route: 048
     Dates: start: 19990428
  116. Clont [Concomitant]
     Indication: Bacterial infection
  117. OCTAGAM IMMUNE GLOBULIN (HUMAN) [Concomitant]
     Active Substance: HUMAN IMMUNOGLOBULIN G
     Indication: Bone marrow transplant
     Route: 065
     Dates: start: 19990419, end: 19990429
  118. OCTAGAM IMMUNE GLOBULIN (HUMAN) [Concomitant]
     Active Substance: HUMAN IMMUNOGLOBULIN G
     Route: 065
     Dates: start: 19990429, end: 19990519
  119. FAMOTIDINE [Concomitant]
     Active Substance: FAMOTIDINE
     Indication: Prophylaxis against gastrointestinal ulcer
     Dosage: 40 MG, QD
     Route: 042
     Dates: start: 19990502
  120. MESNA [Concomitant]
     Active Substance: MESNA
     Indication: Prophylaxis
     Route: 042
     Dates: start: 19990425, end: 19990426
  121. KCL [Concomitant]
     Active Substance: POTASSIUM CHLORIDE
     Indication: Hypokalaemia
     Route: 042
     Dates: start: 19990424
  122. AMINO ACIDS, SOURCE UNSPECIFIED [Concomitant]
     Active Substance: AMINO ACIDS, SOURCE UNSPECIFIED
     Indication: Nutritional supplementation
     Dosage: 100 MILLILITER, QD
     Route: 065
  123. Taraxacum officinale extract [Concomitant]
     Indication: Nutritional supplementation
     Route: 042
     Dates: start: 19990518, end: 19990521
  124. Aminomix [Concomitant]
     Indication: Product used for unknown indication

REACTIONS (2)
  - Stevens-Johnson syndrome [Fatal]
  - Toxic epidermal necrolysis [Unknown]

NARRATIVE: CASE EVENT DATE: 19990521
